FAERS Safety Report 6441232-0 (Version None)
Quarter: 2009Q4

REPORT INFORMATION
  Report Type: 
  Country: None (occurrence: None)
  Receive Date: 20091116
  Receipt Date: 20091106
  Transmission Date: 20100525
  Serious: Yes (Hospitalization)
  Sender: FDA-Public Use
  Company Number: US-ASTRAZENECA-2009SE08713

PATIENT
  Age: 69 Year
  Sex: Female
  Weight: 70.8 kg

DRUGS (17)
  1. NEXIUM [Suspect]
     Route: 048
  2. LISINOPRIL [Suspect]
     Route: 048
  3. METOPROLOL [Suspect]
     Route: 048
  4. PRILOSEC OTC [Suspect]
     Route: 048
  5. SEROQUEL [Suspect]
     Route: 048
  6. WARFARIN SODIUM [Concomitant]
     Dosage: AS ORDERED
  7. PLAVIX [Concomitant]
  8. IBUPROFEN [Concomitant]
  9. ASPIRIN [Concomitant]
  10. ALPRAZOLAM [Concomitant]
     Dosage: 1 MG THREE TIMES A DAY AND TWO AT BEDTIME
  11. DILITAZEM [Concomitant]
  12. IMDUR [Concomitant]
  13. NITROGLYCERIN [Concomitant]
     Dosage: AS NEEDED
  14. HYDROCODONE [Concomitant]
  15. LASIX [Concomitant]
     Dosage: 80 MG ONE TO TWO TABLET DAILY
  16. SUCRALFATE [Concomitant]
     Dosage: 1 GM FOUR TIMES A DAY
  17. THIORDIAZETOFIDE [Concomitant]

REACTIONS (6)
  - ABDOMINAL PAIN UPPER [None]
  - CHEST PAIN [None]
  - DIARRHOEA [None]
  - DRUG INEFFECTIVE [None]
  - NAUSEA [None]
  - VOMITING [None]
